FAERS Safety Report 4530547-9 (Version None)
Quarter: 2004Q4

REPORT INFORMATION
  Report Type: 
  Country: None (occurrence: None)
  Receive Date: 20041216
  Receipt Date: 20041216
  Transmission Date: 20050328
  Serious: Yes (Hospitalization)
  Sender: FDA-Public Use
  Company Number: None

PATIENT
  Age: 57 Year
  Sex: Male
  Weight: 60.8 kg

DRUGS (5)
  1. DOCETAXEL 20MG/ M2 AVENTIS [Suspect]
     Indication: NON-SMALL CELL LUNG CANCER
     Dosage: 37 MG/IV
     Route: 042
     Dates: start: 20041012, end: 20041124
  2. CARBOPLATIN [Suspect]
     Indication: NON-SMALL CELL LUNG CANCER
     Dosage: 260 MG/IV
     Route: 042
     Dates: start: 20041012, end: 20041124
  3. LORTAB PRN [Concomitant]
  4. ALBUTEROL [Concomitant]
  5. PHENERGHEN PRN [Concomitant]

REACTIONS (10)
  - ANAEMIA [None]
  - BACK PAIN [None]
  - CHEST PAIN [None]
  - COUGH [None]
  - DYSPNOEA [None]
  - FATIGUE [None]
  - MASS [None]
  - PNEUMONIA [None]
  - REFUSAL OF TREATMENT BY PATIENT [None]
  - WEIGHT DECREASED [None]
